FAERS Safety Report 6913725-0 (Version None)
Quarter: 2010Q3

REPORT INFORMATION
  Report Type: 
  Country: None (occurrence: None)
  Receive Date: 20100806
  Receipt Date: 20100806
  Transmission Date: 20110219
  Serious: Yes (Other)
  Sender: FDA-Public Use
  Company Number: None

PATIENT
  Age: 66 Year
  Sex: Female
  Weight: 60.782 kg

DRUGS (2)
  1. FLINTSTONES GUMMIES MULTIVITAMIN [Suspect]
     Indication: UNEVALUABLE EVENT
     Dosage: 1 A DAY
  2. FLINTSTONES GUMMIES MULTIVITAMIN [Suspect]
     Indication: URTICARIA
     Dosage: 1 A DAY

REACTIONS (3)
  - PRODUCT FORMULATION ISSUE [None]
  - TENSION HEADACHE [None]
  - URTICARIA [None]
